FAERS Safety Report 5014666-9 (Version None)
Quarter: 2006Q2

REPORT INFORMATION
  Report Type: 
  Country: None (occurrence: None)
  Receive Date: 20060531
  Receipt Date: 20060523
  Transmission Date: 20061013
  Serious: Yes (Other)
  Sender: FDA-Public Use
  Company Number: US-MERCK-0605USA04520

PATIENT
  Age: 66 Year
  Sex: Female

DRUGS (1)
  1. FOSAMAX PLUS D [Suspect]
     Indication: OSTEOPOROSIS
     Route: 048
     Dates: start: 20060507, end: 20060521

REACTIONS (3)
  - CHILLS [None]
  - MUSCULOSKELETAL STIFFNESS [None]
  - MYALGIA [None]
